FAERS Safety Report 17098235 (Version 26)
Quarter: 2023Q1

REPORT INFORMATION
  Report Type: Spontaneous
  Country: US (occurrence: US)
  Receive Date: 20191202
  Receipt Date: 20230315
  Transmission Date: 20230418
  Serious: Yes (Other)
  Sender: FDA-Public Use
  Company Number: US-PFIZER INC-2019508379

PATIENT
  Age: 70 Year
  Sex: Female

DRUGS (2)
  1. EUCRISA [Suspect]
     Active Substance: CRISABOROLE
     Indication: Dermatitis atopic
     Dosage: APPLY TO TRUNK, ARM, AND LEGS, 2X/DAY
     Route: 061
  2. EUCRISA [Suspect]
     Active Substance: CRISABOROLE
     Indication: Urticaria chronic

REACTIONS (25)
  - Skin cancer [Unknown]
  - Accident [Unknown]
  - Drug ineffective [Unknown]
  - Expired product administered [Unknown]
  - Insomnia [Not Recovered/Not Resolved]
  - Erythema [Recovering/Resolving]
  - Multiple allergies [Unknown]
  - Condition aggravated [Unknown]
  - Stress [Unknown]
  - Malaise [Not Recovered/Not Resolved]
  - Anxiety [Unknown]
  - Headache [Unknown]
  - Oropharyngeal pain [Not Recovered/Not Resolved]
  - Nervousness [Unknown]
  - Urticaria [Not Recovered/Not Resolved]
  - Rash macular [Unknown]
  - Rash pruritic [Unknown]
  - Rash [Unknown]
  - Fibromyalgia [Unknown]
  - Memory impairment [Unknown]
  - Anxiety [Unknown]
  - Stress [Unknown]
  - Pruritus [Unknown]
  - Pigmentation disorder [Unknown]
  - Suspected COVID-19 [Unknown]

NARRATIVE: CASE EVENT DATE: 20160101
